FAERS Safety Report 9282237 (Version 1)
Quarter: 2013Q2

REPORT INFORMATION
  Report Type: Spontaneous
  Country: US (occurrence: None)
  Receive Date: 20130509
  Receipt Date: 20130509
  Transmission Date: 20140414
  Serious: Yes (Death, Life-Threatening)
  Sender: FDA-Public Use
  Company Number: None

PATIENT
  Age: 67 Year
  Sex: Female
  Weight: 122.6 kg

DRUGS (27)
  1. LOVENOX [Suspect]
     Indication: DRUG THERAPY
     Dosage: 120 MG Q12H SQ
     Route: 058
     Dates: start: 20130423, end: 20130425
  2. NOREPINEPHRINE [Concomitant]
  3. VASOPRESSIN [Concomitant]
  4. SODIUM BICARBONATE [Concomitant]
  5. INSULIN [Concomitant]
  6. MAGNESIUM SULFATE [Concomitant]
  7. VITAMIN K [Concomitant]
  8. PIPERACILIN-TAZOBACTAM [Concomitant]
  9. PROPOFOL [Concomitant]
  10. FLUID BOLUS [Concomitant]
  11. ACETAMINOPHEN [Concomitant]
  12. AMLODIPINE [Concomitant]
  13. ASPIRIN [Concomitant]
  14. AZITHROMYCIN [Concomitant]
  15. BENZONATATE [Concomitant]
  16. BISACODYL [Concomitant]
  17. CLONAZEPAM [Concomitant]
  18. DIGOXIN [Concomitant]
  19. DILTIAZEM [Concomitant]
  20. FLUOXETINE [Concomitant]
  21. FUROSEMIDE [Concomitant]
  22. HEPARIN [Concomitant]
  23. HYDROMORPHONE [Concomitant]
  24. ISOSORBIDE MONONITRATE [Suspect]
  25. LEVOTHYROXINE [Concomitant]
  26. LORATIDINE [Concomitant]
  27. METHYLPREDNISOLONE [Concomitant]

REACTIONS (9)
  - Abdominal discomfort [None]
  - Contusion [None]
  - Retroperitoneal haematoma [None]
  - Unresponsive to stimuli [None]
  - Pulse absent [None]
  - Activated partial thromboplastin time prolonged [None]
  - Blood creatinine increased [None]
  - White blood cell count increased [None]
  - Haematocrit decreased [None]
